FAERS Safety Report 6655078-1 (Version None)
Quarter: 2010Q1

REPORT INFORMATION
  Report Type: 
  Country: None (occurrence: None)
  Receive Date: 20100329
  Receipt Date: 20100313
  Transmission Date: 20100710
  Serious: Yes (Hospitalization)
  Sender: FDA-Public Use
  Company Number: US-JNJFOC-20090405450

PATIENT
  Sex: Female
  Weight: 71.67 kg

DRUGS (11)
  1. LEVAQUIN [Suspect]
     Indication: PNEUMONIA
  2. LEVAQUIN [Suspect]
     Indication: RESPIRATORY DISORDER
  3. PREDNISONE [Suspect]
     Indication: RENAL TRANSPLANT
  4. PLAVIX [Concomitant]
  5. TOPROL-XL [Concomitant]
  6. DIOVAN [Concomitant]
  7. ZOCOR [Concomitant]
  8. AZATHIOPRINE [Concomitant]
  9. SYNTHROID [Concomitant]
  10. TRICOR [Concomitant]
  11. ASPIRIN [Concomitant]

REACTIONS (3)
  - CARDIAC DISORDER [None]
  - TENDON RUPTURE [None]
  - TENDONITIS [None]
